FAERS Safety Report 8099667-9 (Version None)
Quarter: 2012Q1

REPORT INFORMATION
  Report Type: 
  Country: None (occurrence: None)
  Receive Date: 20120129
  Receipt Date: 20111021
  Transmission Date: 20120608
  Serious: No
  Sender: FDA-Public Use
  Company Number: US-ABBOTT-11P-163-0862206-00

PATIENT
  Sex: Female
  Weight: 118.04 kg

DRUGS (11)
  1. PRISTIQ [Concomitant]
     Indication: ANXIETY
  2. PREDNISONE TAB [Concomitant]
     Dates: start: 20111019, end: 20111020
  3. LEVOXYL [Concomitant]
     Indication: HYPOTHYROIDISM
     Dates: start: 20101101
  4. MULTI-VITAMINS [Concomitant]
     Indication: VITAMIN SUPPLEMENTATION
  5. HUMIRA [Suspect]
     Indication: RHEUMATOID ARTHRITIS
     Dates: start: 20110927
  6. FLAXSEED OIL [Concomitant]
     Indication: PRODUCT USED FOR UNKNOWN INDICATION
  7. PRISTIQ [Concomitant]
     Indication: DEPRESSION
  8. PREDNISONE TAB [Concomitant]
     Indication: RHEUMATOID ARTHRITIS
     Dates: start: 20110101, end: 20110930
  9. LOESTRIN 1.5/30 [Concomitant]
     Indication: CONTRACEPTION
  10. VITAMIN D [Concomitant]
     Indication: VITAMIN SUPPLEMENTATION
  11. PREDNISONE TAB [Concomitant]
     Dates: start: 20111020

REACTIONS (22)
  - ARTHROPATHY [None]
  - DRY EYE [None]
  - MUSCLE TIGHTNESS [None]
  - PAIN IN EXTREMITY [None]
  - CONDITION AGGRAVATED [None]
  - JOINT CREPITATION [None]
  - RASH ERYTHEMATOUS [None]
  - PAIN [None]
  - OROPHARYNGEAL PAIN [None]
  - RHEUMATOID ARTHRITIS [None]
  - ARTHRITIS [None]
  - POOR QUALITY SLEEP [None]
  - MUSCLE SPASMS [None]
  - VISION BLURRED [None]
  - PYREXIA [None]
  - MYALGIA [None]
  - HOT FLUSH [None]
  - BURNING SENSATION [None]
  - IMPAIRED WORK ABILITY [None]
  - OEDEMA [None]
  - MOVEMENT DISORDER [None]
  - WEIGHT BEARING DIFFICULTY [None]
